FAERS Safety Report 6628430-8 (Version None)
Quarter: 2010Q1

REPORT INFORMATION
  Report Type: 
  Country: None (occurrence: None)
  Receive Date: 20100311
  Receipt Date: 20100226
  Transmission Date: 20100710
  Serious: Yes (Other)
  Sender: FDA-Public Use
  Company Number: US-PFIZER INC-2010025563

PATIENT
  Sex: Male
  Weight: 70.295 kg

DRUGS (13)
  1. CHANTIX [Suspect]
     Indication: SMOKING CESSATION THERAPY
     Dosage: 0.5 MG, 1X/DAY
     Route: 048
     Dates: start: 20091101, end: 20091101
  2. CHANTIX [Suspect]
     Dosage: UNK
     Dates: start: 20091101, end: 20091101
  3. PLAVIX [Concomitant]
     Indication: CARDIAC DISORDER
     Dosage: 75 MG, 1X/DAY
     Route: 048
     Dates: start: 20091030
  4. IMDUR [Concomitant]
     Indication: CARDIAC DISORDER
     Dosage: 60 MG, 1X/DAY
     Route: 048
     Dates: start: 20091030
  5. CYMBALTA [Concomitant]
     Dosage: 60 MG, 1X/DAY
     Route: 048
  6. LISINOPRIL [Concomitant]
     Indication: CARDIAC DISORDER
     Dosage: 10 MG, 2X/DAY
     Route: 048
  7. AMLODIPINE BESILATE [Concomitant]
     Indication: CARDIAC DISORDER
     Dosage: 10 MG, 1X/DAY
     Route: 048
  8. SIMVASTATIN [Concomitant]
     Indication: BLOOD CHOLESTEROL
     Dosage: 40 MG, 1X/DAY
     Route: 048
  9. TEMAZEPAM [Concomitant]
     Indication: INSOMNIA
     Dosage: 30 MG, 1X/DAY
     Route: 048
  10. RANITIDINE HYDROCHLORIDE [Concomitant]
     Indication: GASTROOESOPHAGEAL REFLUX DISEASE
     Dosage: 150 MG, 1X/DAY
     Route: 048
  11. LORTAB [Concomitant]
     Dosage: UNK MG, UNK
     Route: 048
  12. DETROL LA [Concomitant]
     Dosage: 4 MG, 1X/DAY
     Route: 048
  13. FERROUS GLUCONATE [Concomitant]
     Dosage: 324 MG, 3X/DAY
     Route: 048

REACTIONS (3)
  - MYOCARDIAL INFARCTION [None]
  - ROAD TRAFFIC ACCIDENT [None]
  - ROTATOR CUFF SYNDROME [None]
